FAERS Safety Report 25224551 (Version 1)
Quarter: 2025Q2

REPORT INFORMATION
  Report Type: Spontaneous
  Country: US (occurrence: US)
  Receive Date: 20250422
  Receipt Date: 20250422
  Transmission Date: 20250717
  Serious: Yes (Other)
  Sender: PROCTER AND GAMBLE
  Company Number: US-THE PROCTER + GAMBLE COMPANY-PH25003386

PATIENT

DRUGS (1)
  1. BURTS BEES EXTRA WHITE ZEN PEPPERMINT [Suspect]
     Active Substance: SODIUM FLUORIDE
     Route: 002
     Dates: start: 202501

REACTIONS (11)
  - Allergic reaction to excipient [Unknown]
  - Weight decreased [Unknown]
  - Lip blister [Unknown]
  - Chapped lips [Unknown]
  - Lip pruritus [Unknown]
  - Lip discolouration [Unknown]
  - Lip swelling [Unknown]
  - Lip pain [Unknown]
  - Deformity [Unknown]
  - Oral discomfort [Unknown]
  - Mental fatigue [Unknown]

NARRATIVE: CASE EVENT DATE: 20250101
